FAERS Safety Report 5796202-2 (Version None)
Quarter: 2008Q2

REPORT INFORMATION
  Report Type: 
  Country: None (occurrence: None)
  Receive Date: 20080601
  Receipt Date: 20080201
  Transmission Date: 20081010
  Serious: No
  Sender: FDA-Public Use
  Company Number: US200802000592

PATIENT
  Age: 69 Year
  Sex: Female
  Weight: 93 kg

DRUGS (15)
  1. BYETTA [Suspect]
     Indication: TYPE 2 DIABETES MELLITUS
     Dosage: 5 UG, 2/D, SUBCUTANEOUS; 10 UG, 2/D, SUBCUTANEOUS; 5 UG, 2/D, SUBCUTANEOUS
     Route: 058
     Dates: start: 20070901, end: 20071101
  2. BYETTA [Suspect]
     Indication: TYPE 2 DIABETES MELLITUS
     Dosage: 5 UG, 2/D, SUBCUTANEOUS; 10 UG, 2/D, SUBCUTANEOUS; 5 UG, 2/D, SUBCUTANEOUS
     Route: 058
     Dates: start: 20071101, end: 20071101
  3. BYETTA [Suspect]
     Indication: TYPE 2 DIABETES MELLITUS
     Dosage: 5 UG, 2/D, SUBCUTANEOUS; 10 UG, 2/D, SUBCUTANEOUS; 5 UG, 2/D, SUBCUTANEOUS
     Route: 058
     Dates: start: 20071101
  4. EXENATIDE 5MCG PEN, DISPOSABLE DEVICE (EXENATIDE PEN (5MCG)0 PEN,DISPO [Concomitant]
  5. EXENATIDE 5MCG PEN, DISPOSABLE DEVICE (EXENATIDE PEN (5MCG)0 PEN,DISPO [Concomitant]
  6. OMEPRAZOLE [Concomitant]
  7. PLAVIX [Concomitant]
  8. GLIMEPIRIDE [Concomitant]
  9. FUROSEMIDE [Concomitant]
  10. CALCIUM (CALCIUM) [Concomitant]
  11. ASPIRIN [Concomitant]
  12. POTASSIUM (POTASSIUM) [Concomitant]
  13. METFORMIN HCL [Concomitant]
  14. ACETAMINOPHEN (PARACETAMOL0 [Concomitant]
  15. ENALAPRIL MALEATE [Concomitant]

REACTIONS (3)
  - BLOOD GLUCOSE DECREASED [None]
  - HYPERCHLORHYDRIA [None]
  - WEIGHT DECREASED [None]
